FAERS Safety Report 7125765-X (Version None)
Quarter: 2010Q4

REPORT INFORMATION
  Report Type: 
  Country: None (occurrence: None)
  Receive Date: 20101129
  Receipt Date: 20101118
  Transmission Date: 20110411
  Serious: Yes (Other)
  Sender: FDA-Public Use
  Company Number: B0685209A

PATIENT
  Age: 75 Year
  Sex: Female

DRUGS (5)
  1. PAXIL [Suspect]
     Indication: DEPRESSION
     Dosage: 10MG PER DAY
     Route: 048
  2. PAXIL [Suspect]
     Dosage: 20MG PER DAY
     Route: 048
  3. PAXIL [Suspect]
     Dosage: 10MG PER DAY
     Route: 048
  4. DEPAS [Concomitant]
     Route: 048
  5. RESLIN [Concomitant]
     Route: 048

REACTIONS (3)
  - PYREXIA [None]
  - SOMNOLENCE [None]
  - VISUAL IMPAIRMENT [None]
